FAERS Safety Report 7581336-2 (Version None)
Quarter: 2011Q2

REPORT INFORMATION
  Report Type: 
  Country: None (occurrence: None)
  Receive Date: 20110629
  Receipt Date: 20110627
  Transmission Date: 20111010
  Serious: Yes (Other)
  Sender: FDA-Public Use
  Company Number: BR-ABBOTT-10P-020-0640411-00

PATIENT
  Sex: Male
  Weight: 74 kg

DRUGS (6)
  1. LOSARTAN/HYDROCHLOORTHIAZIDE [Concomitant]
     Indication: HYPERTENSION
     Dosage: 50MG/12.5MG ONCE EVERY 24 HRS
     Route: 048
  2. LIPLESS [Concomitant]
     Indication: MIGRAINE
     Route: 048
     Dates: start: 19980101
  3. DEPAKOTE [Suspect]
     Indication: PARTIAL SEIZURES
     Route: 048
     Dates: start: 20100401
  4. ZART H [Concomitant]
     Indication: HYPERTENSION
     Dosage: 50/12.5 MG DAILY
     Route: 048
  5. ASPIRIN [Concomitant]
     Indication: HYPERTENSION
     Route: 048
     Dates: start: 20100401
  6. DEPAKOTE [Suspect]
     Indication: MIGRAINE

REACTIONS (6)
  - DIZZINESS [None]
  - FATIGUE [None]
  - CEREBRAL INFARCTION [None]
  - HEADACHE [None]
  - SOMNOLENCE [None]
  - HYPERHIDROSIS [None]
